FAERS Safety Report 12461922 (Version 1)
Quarter: 2016Q2

REPORT INFORMATION
  Report Type: Report from Study
  Country: US (occurrence: US)
  Receive Date: 20160613
  Receipt Date: 20160613
  Transmission Date: 20160815
  Serious: No
  Sender: FDA-Public Use
  Company Number: US-009507513-1606USA003803

PATIENT
  Sex: Male

DRUGS (2)
  1. ZOCOR [Suspect]
     Active Substance: SIMVASTATIN
     Route: 048
  2. ZETIA [Suspect]
     Active Substance: EZETIMIBE
     Route: 048

REACTIONS (3)
  - Blood cholesterol increased [Unknown]
  - Asthenia [Unknown]
  - Fatigue [Unknown]
